FAERS Safety Report 14615533 (Version 1)
Quarter: 2018Q1

REPORT INFORMATION
  Report Type: Spontaneous
  Country: FR (occurrence: FR)
  Receive Date: 20180308
  Receipt Date: 20180308
  Transmission Date: 20180509
  Serious: Yes (Hospitalization)
  Sender: FDA-Public Use
  Company Number: FR-BRISTOL-MYERS SQUIBB COMPANY-BMS-2018-017126

PATIENT
  Age: 85 Year
  Sex: Female
  Weight: 48 kg

DRUGS (3)
  1. FUROSEMIDE. [Concomitant]
     Active Substance: FUROSEMIDE
     Indication: PRODUCT USED FOR UNKNOWN INDICATION
     Route: 065
  2. COUMADINE [Suspect]
     Active Substance: WARFARIN SODIUM
     Indication: EMBOLISM
     Dosage: 2 MG, UNK
     Route: 048
  3. CEFTRIAXON [Interacting]
     Active Substance: CEFTRIAXONE
     Indication: URINARY TRACT INFECTION
     Route: 030
     Dates: start: 20121229, end: 20121231

REACTIONS (3)
  - Anaemia [Recovered/Resolved]
  - Drug interaction [Recovered/Resolved]
  - Epistaxis [Recovered/Resolved]

NARRATIVE: CASE EVENT DATE: 20121231
